FAERS Safety Report 6583490-8 (Version None)
Quarter: 2010Q1

REPORT INFORMATION
  Report Type: 
  Country: None (occurrence: None)
  Receive Date: 20100216
  Receipt Date: 20100202
  Transmission Date: 20100710
  Serious: Yes (Hospitalization, Other)
  Sender: FDA-Public Use
  Company Number: PHEH2010US01936

PATIENT
  Sex: Female

DRUGS (3)
  1. DIOVAN [Suspect]
     Dosage: 160 MG
     Dates: start: 20090801
  2. DIOVAN [Suspect]
     Dosage: 80 MG
  3. DIOVAN [Suspect]
     Dosage: 40 MG

REACTIONS (1)
  - LIVER DISORDER [None]
